FAERS Safety Report 15395352 (Version 1)
Quarter: 2018Q3

REPORT INFORMATION
  Report Type: Report from Study
  Country: US (occurrence: US)
  Receive Date: 20180918
  Receipt Date: 20180918
  Transmission Date: 20181010
  Serious: Yes (Other)
  Sender: FDA-Public Use
  Company Number: US-ASTELLAS-2018US040563

PATIENT
  Sex: Female

DRUGS (1)
  1. MIRABEGRON [Suspect]
     Active Substance: MIRABEGRON
     Indication: PRODUCT USED FOR UNKNOWN INDICATION
     Dosage: UNK, UNKNOWN FREQ.
     Route: 048

REACTIONS (7)
  - Urinary incontinence [Unknown]
  - Gait inability [Unknown]
  - Arthritis [Unknown]
  - Musculoskeletal disorder [Unknown]
  - General physical health deterioration [Unknown]
  - Bladder disorder [Unknown]
  - Treatment noncompliance [Unknown]
